FAERS Safety Report 8372835-4 (Version None)
Quarter: 2012Q2

REPORT INFORMATION
  Report Type: 
  Country: None (occurrence: None)
  Receive Date: 20120521
  Receipt Date: 20120518
  Transmission Date: 20120825
  Serious: Yes (Hospitalization, Other)
  Sender: FDA-Public Use
  Company Number: US-PFIZER INC-2012121416

PATIENT
  Sex: Male
  Weight: 58.957 kg

DRUGS (2)
  1. LYRICA [Suspect]
     Indication: PAIN
     Dosage: 150 MG, 2X/DAY
     Dates: start: 20101001
  2. MESALAMINE [Concomitant]
     Dosage: UNK

REACTIONS (1)
  - CROHN'S DISEASE [None]
